FAERS Safety Report 22643943 (Version 1)
Quarter: 2023Q2

REPORT INFORMATION
  Report Type: Spontaneous
  Country: CO (occurrence: CO)
  Receive Date: 20230627
  Receipt Date: 20230627
  Transmission Date: 20230721
  Serious: No
  Sender: FDA-Public Use
  Company Number: CO-PFIZER INC-PV202300108161

PATIENT
  Sex: Female

DRUGS (1)
  1. GENOTROPIN [Suspect]
     Active Substance: SOMATROPIN
     Dosage: 1.6 MG
     Route: 058
     Dates: start: 2022

REACTIONS (3)
  - Device use issue [Unknown]
  - Wrong technique in device usage process [Unknown]
  - Device issue [Unknown]
